FAERS Safety Report 25239468 (Version 1)
Quarter: 2025Q2

REPORT INFORMATION
  Report Type: Spontaneous
  Country: US (occurrence: None)
  Receive Date: 20250424
  Receipt Date: 20250424
  Transmission Date: 20250716
  Serious: Yes (Disabling)
  Sender: FDA-CTU
  Company Number: None

PATIENT
  Age: 48 Year
  Sex: Male
  Weight: 99 kg

DRUGS (6)
  1. FINASTERIDE [Suspect]
     Active Substance: FINASTERIDE
     Indication: Alopecia
     Route: 048
  2. FINASTERIDE [Suspect]
     Active Substance: FINASTERIDE
     Indication: Prostatic disorder
  3. DUTASTERIDE [Suspect]
     Active Substance: DUTASTERIDE
  4. Taladafil [Concomitant]
  5. GABAPENTIN [Concomitant]
     Active Substance: GABAPENTIN
  6. BUPRENORPHINE [Concomitant]
     Active Substance: BUPRENORPHINE

REACTIONS (4)
  - Anxiety [None]
  - Erectile dysfunction [None]
  - Anorgasmia [None]
  - Therapy cessation [None]

NARRATIVE: CASE EVENT DATE: 20230201
